FAERS Safety Report 4941721-1 (Version None)
Quarter: 2006Q1

REPORT INFORMATION
  Report Type: 
  Country: None (occurrence: None)
  Receive Date: 20060308
  Receipt Date: 20060224
  Transmission Date: 20060701
  Serious: Yes (Other)
  Sender: FDA-Public Use
  Company Number: 2006028469

PATIENT
  Age: 41 Year
  Sex: Male
  Weight: 97.5234 kg

DRUGS (2)
  1. CALAN [Suspect]
     Indication: HEART RATE IRREGULAR
     Dosage: 240 MG
     Dates: start: 19860101
  2. NEURONTIN [Concomitant]

REACTIONS (4)
  - CROHN'S DISEASE [None]
  - DEPRESSION [None]
  - NEPHROLITHIASIS [None]
  - PHARMACEUTICAL PRODUCT COMPLAINT [None]
